FAERS Safety Report 7468917-1 (Version None)
Quarter: 2011Q2

REPORT INFORMATION
  Report Type: 
  Country: None (occurrence: None)
  Receive Date: 20110428
  Receipt Date: 20110412
  Transmission Date: 20111010
  Serious: Yes (Hospitalization)
  Sender: FDA-Public Use
  Company Number: 2011-0879

PATIENT
  Sex: Male

DRUGS (13)
  1. RIVASTIGMINE (RIVATIGMINE) [Concomitant]
  2. DURAGESIC-100 [Concomitant]
  3. APO-GO PFS (APO-GO) (APOMORPHINE HYDROCHLORIDE) (AMPOMORPHINE  HYDROCH [Suspect]
     Indication: PARKINSON'S DISEASE
     Dosage: 2.7 ML PER HOUR (FOR 14 HOURS), SUBCUTANEOUS
     Route: 058
     Dates: start: 20100423, end: 20110201
  4. NUSEALS (ACETYLSALICYCLIC ACID) [Concomitant]
  5. TAMSULOSIN HCL [Concomitant]
  6. SINAMET (SINEMET) [Concomitant]
  7. GABAPENTIN [Concomitant]
  8. CLONAZEPAM [Concomitant]
  9. STALEVO (STALEVO) [Concomitant]
  10. ASPIRIN [Concomitant]
  11. ALLOPURINOL [Concomitant]
  12. ENTACAPONE [Concomitant]
  13. FLUROCARTISONE (FLUDROCORTISONE) [Concomitant]

REACTIONS (4)
  - RASH [None]
  - CELLULITIS [None]
  - SKIN NECROSIS [None]
  - NODULE [None]
